APPROVED DRUG PRODUCT: IOMERVU
Active Ingredient: IOMEPROL
Strength: 35GM IODINE/100ML (350MG IODINE/ML)
Dosage Form/Route: SOLUTION;INTRAVENOUS
Application: N216017 | Product #007
Applicant: BRACCO DIAGNOSTICS INC
Approved: Nov 27, 2024 | RLD: Yes | RS: No | Type: DISCN

EXCLUSIVITY:
Code: NCE | Date: Nov 27, 2029